FAERS Safety Report 5413672-X (Version None)
Quarter: 2007Q3

REPORT INFORMATION
  Report Type: 
  Country: None (occurrence: None)
  Receive Date: 20070814
  Receipt Date: 20070808
  Transmission Date: 20080115
  Serious: Yes (Hospitalization)
  Sender: FDA-Public Use
  Company Number: FR-ASTRAZENECA-2006CG01287

PATIENT
  Age: 74 Year
  Sex: Male
  Weight: 75 kg

DRUGS (7)
  1. NEXIUM [Suspect]
     Indication: GASTRIC ULCER HAEMORRHAGE
     Route: 048
     Dates: start: 20060514, end: 20060522
  2. NEXIUM [Suspect]
     Route: 048
     Dates: start: 20060526, end: 20060531
  3. NEXIUM [Suspect]
     Route: 048
     Dates: start: 20060603, end: 20060614
  4. CALCIPARINE [Concomitant]
     Dates: start: 20060526
  5. LASIX [Concomitant]
  6. TRIATEC [Concomitant]
  7. NOVONORM [Concomitant]

REACTIONS (3)
  - EPISTAXIS [None]
  - GINGIVAL BLEEDING [None]
  - THROMBOCYTOPENIA [None]
